FAERS Safety Report 4470689-X (Version None)
Quarter: 2004Q4

REPORT INFORMATION
  Report Type: 
  Country: None (occurrence: None)
  Receive Date: 20041006
  Receipt Date: 20040629
  Transmission Date: 20050328
  Serious: Yes (Other)
  Sender: FDA-Public Use
  Company Number: 207659

PATIENT
  Age: 52 Year
  Sex: Female
  Weight: 47 kg

DRUGS (5)
  1. HERCEPTIN [Suspect]
     Indication: BREAST CANCER
     Dosage: 96 MG, 1/WEEK; INTRAVENOUS
     Route: 042
     Dates: start: 20031118, end: 20040622
  2. ZOMETA [Concomitant]
  3. ARIMIDEX [Concomitant]
  4. FEMARA [Concomitant]
  5. TAXOL [Concomitant]

REACTIONS (3)
  - HEPATIC FAILURE [None]
  - HEPATIC STEATOSIS [None]
  - MULTI-ORGAN FAILURE [None]
